FAERS Safety Report 18254713 (Version 1)
Quarter: 2020Q3

REPORT INFORMATION
  Report Type: Spontaneous
  Country: US (occurrence: US)
  Receive Date: 20200910
  Receipt Date: 20200910
  Transmission Date: 20201103
  Serious: Yes (Hospitalization)
  Sender: FDA-Public Use
  Company Number: US-ASTRAZENECA-2020SF14648

PATIENT
  Age: 68 Year
  Sex: Male

DRUGS (2)
  1. CALQUENCE [Suspect]
     Active Substance: ACALABRUTINIB
     Indication: CHRONIC LYMPHOCYTIC LEUKAEMIA
     Dosage: DOSE AND FREQUENCY UNKNOWN
     Route: 050
     Dates: start: 202004
  2. ELEQUIS [Concomitant]

REACTIONS (4)
  - Pneumonia [Unknown]
  - Anaemia [Unknown]
  - Leukocytosis [Unknown]
  - Dysphagia [Unknown]
